FAERS Safety Report 4482196-9 (Version None)
Quarter: 2004Q4

REPORT INFORMATION
  Report Type: 
  Country: None (occurrence: None)
  Receive Date: 20041020
  Receipt Date: 20041012
  Transmission Date: 20050328
  Serious: Yes (Hospitalization, Other)
  Sender: FDA-Public Use
  Company Number: THQ2004A00791

PATIENT
  Age: 48 Year
  Sex: Male

DRUGS (2)
  1. INEXIUM (ESOMEPRAZOLE) (UNKNOWN) [Suspect]
  2. BIPROFENID (KETOPROFEN) (TABLETS) [Suspect]
     Indication: NEPHROLITHIASIS
     Dosage: CONTROLLED/MODIFIED RELEASE TABLETS;  PER ORAL
     Route: 048

REACTIONS (2)
  - GASTRIC PERFORATION [None]
  - PERITONITIS [None]
